FAERS Safety Report 7594133-9 (Version None)
Quarter: 2011Q3

REPORT INFORMATION
  Report Type: 
  Country: None (occurrence: None)
  Receive Date: 20110706
  Receipt Date: 20110705
  Transmission Date: 20111222
  Serious: Yes (Other)
  Sender: FDA-Public Use
  Company Number: GR-PFIZER INC-2011149580

PATIENT
  Age: 46 Year
  Sex: Female

DRUGS (2)
  1. ZIPRASIDONE HCL [Suspect]
     Indication: MENTAL IMPAIRMENT
  2. RISPERIDONE [Suspect]
     Indication: MENTAL IMPAIRMENT

REACTIONS (2)
  - ANTICHOLINERGIC SYNDROME [None]
  - EXTRAPYRAMIDAL DISORDER [None]
